FAERS Safety Report 21800992 (Version 1)
Quarter: 2022Q4

REPORT INFORMATION
  Report Type: Spontaneous
  Country: US (occurrence: None)
  Receive Date: 20221229
  Receipt Date: 20221229
  Transmission Date: 20230113
  Serious: Yes (Hospitalization)
  Sender: FDA-Public Use
  Company Number: None

PATIENT
  Age: 74 Year
  Sex: Male
  Weight: 68.9 kg

DRUGS (8)
  1. PEMBROLIZUMAB [Suspect]
     Active Substance: PEMBROLIZUMAB
     Indication: Bladder cancer
     Dosage: OTHER FREQUENCY : EVERY 21 DAYS;?
     Route: 041
     Dates: start: 20220908, end: 20221020
  2. sodium bicarbonate 325mg BID [Concomitant]
  3. Lovenox 40mg/0.4ml (0.4mL every 12 hours subq) [Concomitant]
     Dates: start: 20221204
  4. oxycodone 5mg every 8 hours PRN [Concomitant]
     Dates: start: 20221204
  5. Synthroid 50mcg daily [Concomitant]
     Dates: start: 20221021
  6. Aricept 10mg daily [Concomitant]
  7. Flomax 0.4mg daily [Concomitant]
     Dates: start: 20220615
  8. Crestor 40mg daily [Concomitant]
     Dates: start: 20220620

REACTIONS (4)
  - Acute kidney injury [None]
  - Dehydration [None]
  - Fatigue [None]
  - Asthenia [None]

NARRATIVE: CASE EVENT DATE: 20221226
